FAERS Safety Report 6046247-2 (Version None)
Quarter: 2009Q1

REPORT INFORMATION
  Report Type: 
  Country: None (occurrence: None)
  Receive Date: 20090121
  Receipt Date: 20090121
  Transmission Date: 20090719
  Serious: Yes (Other)
  Sender: FDA-Public Use
  Company Number: None

PATIENT
  Age: 42 Year
  Sex: Female
  Weight: 73.0291 kg

DRUGS (1)
  1. FLUOXETINE [Suspect]
     Indication: DEPRESSION
     Dosage: 20 MG ONCE QA DAY PO
     Route: 048
     Dates: start: 20080702, end: 20081231

REACTIONS (3)
  - DIZZINESS [None]
  - PALPITATIONS [None]
  - WEIGHT INCREASED [None]
